FAERS Safety Report 5044335-0 (Version None)
Quarter: 2006Q2

REPORT INFORMATION
  Report Type: 
  Country: None (occurrence: None)
  Receive Date: 20060629
  Receipt Date: 20060615
  Transmission Date: 20061013
  Serious: Yes (Hospitalization, Other)
  Sender: FDA-Public Use
  Company Number: 2004114443

PATIENT
  Sex: Female
  Weight: 66.5 kg

DRUGS (9)
  1. DILANTIN KAPSEAL [Suspect]
     Indication: EPILEPSY
     Dosage: 300 MG (300 MG, 1 IN 1 D) ORAL
     Route: 048
     Dates: end: 20041201
  2. PRIMIDONE [Suspect]
  3. VALPROIC ACID [Suspect]
     Indication: CONVULSION
  4. LAMICTAL [Suspect]
     Indication: CONVULSION
  5. CLOBAZAM (CLOBAZAM) [Suspect]
     Dosage: ORAL
     Route: 048
  6. DEPAKENE [Suspect]
     Dosage: ORAL
     Route: 048
     Dates: start: 19970101
  7. VITAMINS [Concomitant]
  8. CALCIUM GLUCONATE [Concomitant]
  9. FRISIUM (CLOBAZAM) [Concomitant]

REACTIONS (29)
  - ALANINE AMINOTRANSFERASE INCREASED [None]
  - ALOPECIA [None]
  - ANTICONVULSANT DRUG LEVEL INCREASED [None]
  - ANXIETY [None]
  - ASPARTATE AMINOTRANSFERASE INCREASED [None]
  - ASTHMA [None]
  - BLOOD ALKALINE PHOSPHATASE INCREASED [None]
  - BLOOD COUNT ABNORMAL [None]
  - BLOOD GLUCOSE INCREASED [None]
  - CENTRAL NERVOUS SYSTEM LESION [None]
  - DRUG INEFFECTIVE [None]
  - FEELING ABNORMAL [None]
  - GAMMA-GLUTAMYLTRANSFERASE INCREASED [None]
  - GINGIVAL BLEEDING [None]
  - GINGIVAL HYPERPLASIA [None]
  - HEPATIC MASS [None]
  - HEPATOMEGALY [None]
  - HYPERPLASIA [None]
  - HYPOREFLEXIA [None]
  - LYMPHADENOPATHY [None]
  - LYMPHOID TISSUE HYPERPLASIA [None]
  - OSTEOPENIA [None]
  - OSTEOPOROSIS [None]
  - OVARIAN CYST [None]
  - PSEUDO LYMPHOMA [None]
  - SOMNOLENCE [None]
  - SPLENOMEGALY [None]
  - UTERINE LEIOMYOMA [None]
  - WEIGHT INCREASED [None]
